FAERS Safety Report 4875667-4 (Version None)
Quarter: 2006Q1

REPORT INFORMATION
  Report Type: 
  Country: None (occurrence: None)
  Receive Date: 20060105
  Receipt Date: 20051223
  Transmission Date: 20060701
  Serious: Yes (Hospitalization)
  Sender: FDA-Public Use
  Company Number: GXKR2005NL02214

PATIENT
  Age: 16 Year
  Sex: Female

DRUGS (4)
  1. CEFTRIAXONE [Suspect]
     Indication: MENINGITIS
     Dosage: 4 G, QD, INTRAVENOUS
     Route: 042
     Dates: start: 20050820, end: 20050917
  2. BUTYLSCOPOLAMIN (HYOSCINE BUTYLBROMIDE) [Concomitant]
  3. DICLOFENAC (DICLOFENAC) [Concomitant]
  4. PARACETAMOL (PARACETAMOL) [Concomitant]

REACTIONS (2)
  - CHOLELITHIASIS [None]
  - CLOSTRIDIUM COLITIS [None]
